FAERS Safety Report 5272936-3 (Version None)
Quarter: 2007Q1

REPORT INFORMATION
  Report Type: 
  Country: None (occurrence: None)
  Receive Date: 20070322
  Receipt Date: 20060622
  Transmission Date: 20070707
  Serious: Yes (Other)
  Sender: FDA-Public Use
  Company Number: JP-AVENTIS-200611863JP

PATIENT
  Age: 0 Year
  Sex: Female
  Weight: 2.17 kg

DRUGS (3)
  1. FUROSEMIDE [Suspect]
     Indication: DIURETIC EFFECT
     Route: 064
  2. DIART [Suspect]
     Indication: DIURETIC EFFECT
     Route: 064
  3. FLUITRAN [Suspect]
     Indication: DIURETIC EFFECT
     Route: 064

REACTIONS (1)
  - SMALL FOR DATES BABY [None]
